FAERS Safety Report 7214333-7 (Version None)
Quarter: 2011Q1

REPORT INFORMATION
  Report Type: 
  Country: None (occurrence: None)
  Receive Date: 20110107
  Receipt Date: 20101228
  Transmission Date: 20110831
  Serious: Yes (Other)
  Sender: FDA-Public Use
  Company Number: PHHY2010US34340

PATIENT
  Sex: Female

DRUGS (11)
  1. NITROSTAT [Concomitant]
  2. RECLAST [Suspect]
     Dosage: 5 MG
     Route: 042
  3. LOVAZA [Concomitant]
  4. ATENOLOL [Concomitant]
  5. LEVOTHYROXINE [Concomitant]
  6. CLORAZEPHTE [Concomitant]
  7. PLAVIX [Concomitant]
  8. CITRACAL [Concomitant]
  9. CENTRUM SILVER [Concomitant]
  10. CRESTOR [Concomitant]
  11. VITAMIN D3 [Concomitant]

REACTIONS (15)
  - ADNEXA UTERI PAIN [None]
  - ERYTHEMA [None]
  - PARAESTHESIA ORAL [None]
  - HEADACHE [None]
  - POLLAKIURIA [None]
  - DYSPNOEA [None]
  - PAIN IN JAW [None]
  - OROPHARYNGEAL PAIN [None]
  - CHEST DISCOMFORT [None]
  - NECK PAIN [None]
  - SWOLLEN TONGUE [None]
  - LIP SWELLING [None]
  - PRURITUS [None]
  - URINARY RETENTION [None]
  - EYE PAIN [None]
